FAERS Safety Report 25155247 (Version 2)
Quarter: 2025Q4

REPORT INFORMATION
  Report Type: Report from Study
  Country: US (occurrence: US)
  Receive Date: 20250403
  Receipt Date: 20251022
  Transmission Date: 20260119
  Serious: No
  Sender: MERCK SHARP & DOHME LLC
  Company Number: US-009507513-2263536

PATIENT
  Age: 24 Year
  Sex: Female
  Weight: 47.627 kg

DRUGS (6)
  1. WINREVAIR [Suspect]
     Active Substance: SOTATERCEPT-CSRK
     Indication: Pulmonary arterial hypertension
     Dosage: STARTING DOSE
     Route: 050
     Dates: start: 202411
  2. WINREVAIR [Suspect]
     Active Substance: SOTATERCEPT-CSRK
     Dosage: MAINTENANCE DOSING: 0.6 ML EVERY 3 WEEKS SQ
     Route: 050
     Dates: start: 202412
  3. WINREVAIR [Suspect]
     Active Substance: SOTATERCEPT-CSRK
  4. WINREVAIR [Suspect]
     Active Substance: SOTATERCEPT-CSRK
  5. TREPROSTINIL SODIUM [Suspect]
     Active Substance: TREPROSTINIL SODIUM
     Indication: Pulmonary arterial hypertension
     Dosage: 0.09630  G/KG, CONTINUOUS VIA SUBCUTANEOUS (SQ) ROUTE, CONCENTRATION 10.0 MG/ML
     Route: 058
     Dates: start: 202104
  6. OPSUMIT [Concomitant]
     Active Substance: MACITENTAN

REACTIONS (2)
  - Infusion site pain [Not Recovered/Not Resolved]
  - Epistaxis [Unknown]

NARRATIVE: CASE EVENT DATE: 20251015
